FAERS Safety Report 4944701-5 (Version None)
Quarter: 2006Q1

REPORT INFORMATION
  Report Type: 
  Country: None (occurrence: None)
  Receive Date: 20060123
  Receipt Date: 20050829
  Transmission Date: 20060701
  Serious: Yes (Death)
  Sender: FDA-Public Use
  Company Number: PHEH2005US08039

PATIENT
  Age: 57 Year
  Sex: Male
  Weight: 69.8 kg

DRUGS (5)
  1. SANDOSTATIN LAR [Suspect]
     Indication: CARCINOID SYNDROME
     Dosage: 30 MG, BIW; 2 DOSES 60 MG, BIW, SUBCUTANEOUS; 30 MG, BIW, SUBCUTANEOUS
     Dates: end: 20050601
  2. SANDOSTATIN LAR [Suspect]
     Indication: CARCINOID SYNDROME
     Dosage: 30 MG, BIW; 2 DOSES 60 MG, BIW, SUBCUTANEOUS; 30 MG, BIW, SUBCUTANEOUS
     Dates: start: 20050601, end: 20050705
  3. SANDOSTATIN LAR [Suspect]
     Indication: CARCINOID SYNDROME
     Dosage: 30 MG, BIW; 2 DOSES 60 MG, BIW, SUBCUTANEOUS; 30 MG, BIW, SUBCUTANEOUS
     Dates: start: 20050701
  4. LOPERAMIDE HYDROCHLORIDE [Concomitant]
  5. PREVACID [Concomitant]

REACTIONS (13)
  - ANOREXIA [None]
  - ASTHENIA [None]
  - DEHYDRATION [None]
  - DIARRHOEA [None]
  - EARLY SATIETY [None]
  - FATIGUE [None]
  - FLUSHING [None]
  - INCORRECT ROUTE OF DRUG ADMINISTRATION [None]
  - MALIGNANT NEOPLASM PROGRESSION [None]
  - NAUSEA [None]
  - OEDEMA PERIPHERAL [None]
  - VOMITING [None]
  - WEIGHT DECREASED [None]
